FAERS Safety Report 9376002 (Version 1)
Quarter: 2013Q2

REPORT INFORMATION
  Report Type: Spontaneous
  Country: US (occurrence: US)
  Receive Date: 20130629
  Receipt Date: 20130629
  Transmission Date: 20140414
  Serious: No
  Sender: FDA-Public Use
  Company Number: US-B.I. PHARMACEUTICALS,INC./RIDGEFIELD-2013-BI-18426BP

PATIENT
  Age: 65 Year
  Sex: Female
  Weight: 82 kg

DRUGS (9)
  1. SPIRIVA [Suspect]
     Indication: CHRONIC OBSTRUCTIVE PULMONARY DISEASE
     Dosage: 18 MCG
     Route: 055
     Dates: start: 2009
  2. LIPITOR [Concomitant]
     Indication: BLOOD CHOLESTEROL INCREASED
     Dosage: 100 MG
     Route: 048
  3. FOLIC ACID [Concomitant]
     Dosage: 1 MG
     Route: 048
  4. RISPERIDONE [Concomitant]
     Dosage: 100 MG
     Route: 048
  5. SYNTHROID [Concomitant]
     Indication: THYROID DISORDER
     Dosage: 1.25 MG
     Route: 048
  6. BENZATROPINE [Concomitant]
     Indication: ADVERSE DRUG REACTION
     Dosage: 1 MG
     Route: 048
  7. TOPAMAX [Concomitant]
     Dosage: 100 MG
     Route: 048
  8. ZOLOFT [Concomitant]
     Indication: DEPRESSION
     Dosage: 100 MG
     Route: 048
  9. CELEBREX [Concomitant]
     Indication: ARTHRITIS
     Dosage: 400 MG
     Route: 048

REACTIONS (1)
  - Visual acuity reduced [Not Recovered/Not Resolved]
